FAERS Safety Report 13318244 (Version 2)
Quarter: 2018Q2

REPORT INFORMATION
  Report Type: Spontaneous
  Country: US (occurrence: US)
  Receive Date: 20170310
  Receipt Date: 20180418
  Transmission Date: 20180711
  Serious: No
  Sender: FDA-Public Use
  Company Number: US-009507513-1703USA004342

PATIENT
  Age: 76 Year
  Sex: Male

DRUGS (2)
  1. LENALIDOMIDE [Concomitant]
     Active Substance: LENALIDOMIDE
     Indication: PLASMA CELL MYELOMA
     Dosage: UNK
     Dates: start: 201103
  2. INTRON A [Suspect]
     Active Substance: INTERFERON ALFA-2B
     Indication: METAPLASIA
     Dosage: 1 DROP FOR TIMES DAILY
     Route: 047

REACTIONS (1)
  - Product use in unapproved indication [Unknown]
